FAERS Safety Report 8883568 (Version 5)
Quarter: 2013Q1

REPORT INFORMATION
  Report Type: Spontaneous
  Country: US (occurrence: US)
  Receive Date: 20121102
  Receipt Date: 20130322
  Transmission Date: 20140127
  Serious: Yes (Hospitalization, Disabling, Other)
  Sender: FDA-Public Use
  Company Number: US-MERCK-1210USA010277

PATIENT
  Sex: Female

DRUGS (3)
  1. FOSAMAX [Suspect]
     Indication: OSTEOPOROSIS PROPHYLAXIS
     Dosage: 10 MG, UNK
     Route: 048
     Dates: start: 1997, end: 2000
  2. FOSAMAX [Suspect]
     Dosage: 70 MG, UNK
     Route: 048
     Dates: start: 2000, end: 2006
  3. FOSAMAX PLUS D [Suspect]
     Indication: OSTEOPENIA
     Dosage: UNK
     Route: 048
     Dates: start: 1997, end: 2006

REACTIONS (32)
  - Open reduction of fracture [Unknown]
  - Fracture delayed union [Not Recovered/Not Resolved]
  - Medical device removal [Unknown]
  - Femur fracture [Unknown]
  - Intramedullary rod insertion [Unknown]
  - Stress fracture [Not Recovered/Not Resolved]
  - Haemorrhagic anaemia [Recovered/Resolved]
  - Medical device removal [Unknown]
  - Femur fracture [Not Recovered/Not Resolved]
  - Foot operation [Unknown]
  - Arthrodesis [Recovered/Resolved]
  - Knee operation [Unknown]
  - Skin cancer [Unknown]
  - Low turnover osteopathy [Not Recovered/Not Resolved]
  - Osteoporosis [Not Recovered/Not Resolved]
  - Adverse event [Unknown]
  - Knee arthroplasty [Unknown]
  - Hypercholesterolaemia [Unknown]
  - Osteoarthritis [Unknown]
  - Rhinitis allergic [Unknown]
  - Sleep disorder [Unknown]
  - Affect lability [Unknown]
  - Fall [Unknown]
  - Fluid retention [Unknown]
  - Toe amputation [Recovered/Resolved]
  - Urinary tract infection [Recovered/Resolved]
  - Hypothyroidism [Unknown]
  - Anxiety [Unknown]
  - Joint injury [Unknown]
  - Depression [Unknown]
  - Drug hypersensitivity [Unknown]
  - Gastrooesophageal reflux disease [Not Recovered/Not Resolved]
